FAERS Safety Report 7915765-1 (Version None)
Quarter: 2011Q4

REPORT INFORMATION
  Report Type: 
  Country: None (occurrence: None)
  Receive Date: 20111115
  Receipt Date: 20111102
  Transmission Date: 20120403
  Serious: No
  Sender: FDA-Public Use
  Company Number: US-B.I. PHARMACEUTICALS,INC./RIDGEFIELD-2011-BP-25510BP

PATIENT
  Sex: Female

DRUGS (7)
  1. COQ10 [Concomitant]
     Indication: SUPPLEMENTATION THERAPY
     Route: 048
  2. LANOXIN [Concomitant]
     Indication: ATRIAL FIBRILLATION
     Route: 048
  3. MULTI-VITAMIN [Concomitant]
     Indication: SUPPLEMENTATION THERAPY
     Route: 048
  4. CARVEDILOL [Concomitant]
     Indication: HYPERTENSION
     Route: 048
  5. PRADAXA [Suspect]
     Indication: ATRIAL FIBRILLATION
     Dosage: 300 MG
     Route: 048
     Dates: start: 20110801
  6. ASCORBIC ACID [Concomitant]
     Indication: SUPPLEMENTATION THERAPY
     Route: 048
  7. ATACAND [Concomitant]
     Indication: HYPERTENSION
     Route: 048

REACTIONS (3)
  - ERYTHEMA [None]
  - RASH [None]
  - RASH MACULO-PAPULAR [None]
